FAERS Safety Report 9871443 (Version 1)
Quarter: 2014Q1

REPORT INFORMATION
  Report Type: Spontaneous
  Country: US (occurrence: None)
  Receive Date: 20140204
  Receipt Date: 20140204
  Transmission Date: 20141002
  Serious: Yes (Other)
  Sender: FDA-Public Use
  Company Number: None

PATIENT
  Age: 51 Year
  Sex: Female

DRUGS (1)
  1. FERRLECIT [Suspect]
     Indication: ANAEMIA
     Dosage: 250 MG WEEKLY  INTRAVENOUS
     Route: 042
     Dates: start: 20131219, end: 20140109

REACTIONS (3)
  - Abdominal pain [None]
  - Heart rate decreased [None]
  - Blood pressure immeasurable [None]
